FAERS Safety Report 21360983 (Version 1)
Quarter: 2022Q3

REPORT INFORMATION
  Report Type: Spontaneous
  Country: US (occurrence: US)
  Receive Date: 20220921
  Receipt Date: 20220921
  Transmission Date: 20221027
  Serious: Yes (Other)
  Sender: FDA-Public Use
  Company Number: US-GLAXOSMITHKLINE-US2022GSK134780

PATIENT

DRUGS (8)
  1. METHADONE [Interacting]
     Active Substance: METHADONE HYDROCHLORIDE
     Indication: General anaesthesia
     Dosage: 20 MG
     Route: 042
  2. PROPOFOL [Interacting]
     Active Substance: PROPOFOL
     Indication: General anaesthesia
     Dosage: 200 MG
  3. FENTANYL [Interacting]
     Active Substance: FENTANYL
     Indication: General anaesthesia
     Dosage: 250 UG
     Route: 042
  4. MIDAZOLAM [Interacting]
     Active Substance: MIDAZOLAM
     Indication: General anaesthesia
     Dosage: 2 MG
  5. BUPROPION [Interacting]
     Active Substance: BUPROPION
     Indication: Product used for unknown indication
     Dosage: UNK
  6. CLONAZEPAM [Interacting]
     Active Substance: CLONAZEPAM
     Indication: Product used for unknown indication
     Dosage: UNK
  7. DULOXETINE [Interacting]
     Active Substance: DULOXETINE
     Indication: Product used for unknown indication
     Dosage: UNK
  8. PREGABALIN [Interacting]
     Active Substance: PREGABALIN
     Indication: Product used for unknown indication
     Dosage: UNK

REACTIONS (2)
  - Respiratory depression [Recovered/Resolved]
  - Drug interaction [Unknown]
